FAERS Safety Report 6578139-4 (Version None)
Quarter: 2010Q1

REPORT INFORMATION
  Report Type: 
  Country: None (occurrence: None)
  Receive Date: 20100211
  Receipt Date: 20100201
  Transmission Date: 20100710
  Serious: Yes (Other)
  Sender: FDA-Public Use
  Company Number: JP-PFIZER INC-2010002426

PATIENT
  Age: 65 Year
  Sex: Female

DRUGS (6)
  1. ZITHROMAX [Suspect]
     Indication: UPPER RESPIRATORY TRACT INFLAMMATION
     Dosage: 500 MG, 1X/DAY
     Route: 048
     Dates: start: 20091231
  2. LEFTOSE [Concomitant]
     Indication: RESPIRATORY TRACT INFECTION
     Dosage: UNK
     Route: 048
     Dates: start: 20091229, end: 20100104
  3. LEFTOSE [Concomitant]
     Indication: PHARYNGEAL INFLAMMATION
  4. SAWATENE [Concomitant]
     Dosage: UNK
     Route: 048
     Dates: start: 20091231
  5. MEIACT [Concomitant]
     Indication: PHARYNGEAL INFLAMMATION
     Dosage: UNK
     Route: 048
     Dates: start: 20091229, end: 20091231
  6. MEIACT [Concomitant]
     Indication: RESPIRATORY TRACT INFECTION

REACTIONS (2)
  - IRITIS [None]
  - ORAL MUCOSAL ERUPTION [None]
